FAERS Safety Report 7120715-4 (Version None)
Quarter: 2010Q4

REPORT INFORMATION
  Report Type: 
  Country: None (occurrence: None)
  Receive Date: 20101124
  Receipt Date: 20101117
  Transmission Date: 20110411
  Serious: Yes (Death)
  Sender: FDA-Public Use
  Company Number: ZA-TYCO HEALTHCARE/MALLINCKRODT-T201002311

PATIENT
  Age: 26 Year
  Sex: Female
  Weight: 59 kg

DRUGS (8)
  1. MORPHINE [Suspect]
     Dosage: 10 MG
     Route: 042
  2. MORPHINE [Suspect]
     Dosage: 5 MG
     Route: 042
  3. SUFENTANIL CITRATE [Concomitant]
     Indication: ANAESTHESIA
     Dosage: 10 ?G, UNK
  4. PROPOFOL [Concomitant]
     Indication: ANAESTHESIA
     Dosage: 150 MG, UNK
  5. DESFLURANE [Concomitant]
     Indication: ANAESTHESIA
  6. NITROUS OXIDE [Concomitant]
     Dosage: NITROUS OXIDE IN 50% OXYGEN
  7. CEFUROXIME [Concomitant]
     Route: 042
  8. METRONIDAZOLE [Concomitant]
     Route: 042

REACTIONS (3)
  - BRAIN HYPOXIA [None]
  - CARDIAC ARREST [None]
  - RESPIRATORY DEPRESSION [None]
